FAERS Safety Report 26133002 (Version 1)
Quarter: 2025Q4

REPORT INFORMATION
  Report Type: Spontaneous
  Country: US (occurrence: US)
  Receive Date: 20251209
  Receipt Date: 20251209
  Transmission Date: 20260118
  Serious: Yes (Hospitalization, Other)
  Sender: GALDERMA
  Company Number: US-GALDERMA-US2025025715

PATIENT

DRUGS (1)
  1. DOXYCYCLINE [Suspect]
     Active Substance: DOXYCYCLINE
     Indication: Product used for unknown indication
     Dosage: UNK
     Route: 065

REACTIONS (9)
  - SJS-TEN overlap [Recovering/Resolving]
  - Nausea [Unknown]
  - Vomiting [Unknown]
  - Rash [Unknown]
  - Nasal obstruction [Unknown]
  - Oral pain [Unknown]
  - Dysphagia [Unknown]
  - Dyspnoea [Recovered/Resolved]
  - Dysphonia [Recovered/Resolved]
